FAERS Safety Report 13867358 (Version 3)
Quarter: 2017Q4

REPORT INFORMATION
  Report Type: Spontaneous
  Country: IT (occurrence: IT)
  Receive Date: 20170814
  Receipt Date: 20171031
  Transmission Date: 20180320
  Serious: Yes (Hospitalization, Other)
  Sender: FDA-Public Use
  Company Number: IT-TEVA-795292ACC

PATIENT
  Age: 85 Year
  Sex: Male

DRUGS (1)
  1. VALSARTAN. [Suspect]
     Active Substance: VALSARTAN
     Indication: PRODUCT USED FOR UNKNOWN INDICATION
     Route: 065

REACTIONS (11)
  - Nausea [Recovered/Resolved]
  - Decreased appetite [Recovered/Resolved]
  - Weight decreased [Recovered/Resolved]
  - Diarrhoea [Recovered/Resolved]
  - Eosinophilic colitis [Recovered/Resolved]
  - Enteritis [Recovered/Resolved]
  - Gastrointestinal disorder [Recovered/Resolved]
  - Malabsorption [Recovered/Resolved]
  - Hypokalaemia [Unknown]
  - Renal failure [Recovered/Resolved]
  - Metabolic acidosis [Unknown]
